FAERS Safety Report 9867365 (Version 4)
Quarter: 2015Q1

REPORT INFORMATION
  Report Type: Spontaneous
  Country: US (occurrence: US)
  Receive Date: 20140204
  Receipt Date: 20150327
  Transmission Date: 20150721
  Serious: Yes (Other)
  Sender: FDA-Public Use
  Company Number: US-SA-2014SA013514

PATIENT
  Sex: Female

DRUGS (8)
  1. LANTUS SOLOSTAR [Suspect]
     Active Substance: INSULIN GLARGINE
     Indication: TYPE 2 DIABETES MELLITUS
     Dosage: TAKEN FROM: 3 YEARS.?DOSE: 15-20 UNITS SLIDING
     Route: 051
     Dates: start: 2011
  2. MEDROL [Concomitant]
     Active Substance: METHYLPREDNISOLONE
  3. LANTUS SOLOSTAR [Suspect]
     Active Substance: INSULIN GLARGINE
     Indication: TYPE 2 DIABETES MELLITUS
     Dosage: TAKEN FROM: 3 YEARS.?DOSE: 15-20 UNITS SLIDING
     Route: 051
     Dates: start: 2011
  4. SOLOSTAR [Suspect]
     Active Substance: DEVICE
     Indication: TYPE 2 DIABETES MELLITUS
     Dosage: TAKEN FROM: 3 YEARS.?DOSE: 15-20 UNITS 1-2 TIMES A DAY.
     Dates: start: 2011
  5. SOLOSTAR [Suspect]
     Active Substance: DEVICE
     Indication: TYPE 2 DIABETES MELLITUS
     Dosage: TAKEN FROM: 3 YEARS.?DOSE: 15-20 UNITS 1-2 TIMES A DAY.
     Dates: start: 2011
  6. LANTUS SOLOSTAR [Suspect]
     Active Substance: INSULIN GLARGINE
     Indication: TYPE 2 DIABETES MELLITUS
     Dosage: TAKEN FROM: 3 YEARS.?DOSE: 15-20 UNITS SLIDING
     Route: 051
     Dates: start: 2011
  7. TRADJENTA [Concomitant]
     Active Substance: LINAGLIPTIN
  8. SOLOSTAR [Suspect]
     Active Substance: DEVICE
     Indication: TYPE 2 DIABETES MELLITUS
     Dosage: TAKEN FROM: 3 YEARS.?DOSE: 15-20 UNITS 1-2 TIMES A DAY.
     Dates: start: 2011

REACTIONS (7)
  - Cartilage injury [Unknown]
  - Concussion [Unknown]
  - Tendonitis [Unknown]
  - Pneumonia [Unknown]
  - Hypertension [Unknown]
  - Blood glucose increased [Unknown]
  - Accident [Unknown]

NARRATIVE: CASE EVENT DATE: 2014
